FAERS Safety Report 7996828 (Version 2)
Quarter: 2012Q4

REPORT INFORMATION
  Report Type: 
  Country: CA (occurrence: CA)
  Receive Date: 20110617
  Receipt Date: 20121102
  Transmission Date: 20130627
  Serious: Yes (Death, Hospitalization, Other)
  Sender: FDA-Public Use
  Company Number: PHHY2008CA05711

PATIENT
  Sex: Male

DRUGS (1)
  1. SANDOSTATIN LAR [Suspect]
     Indication: GASTROINTESTINAL ANGIODYSPLASIA
     Dosage: 20 mg, QMO
     Route: 030
     Dates: start: 20071112, end: 20080929

REACTIONS (10)
  - Death [Fatal]
  - General physical health deterioration [Unknown]
  - Fluid retention [Recovering/Resolving]
  - Blood pressure decreased [Unknown]
  - Asthenia [Unknown]
  - Renal failure [Unknown]
  - Diabetes mellitus [Unknown]
  - Pallor [Recovering/Resolving]
  - Heart rate decreased [Unknown]
  - Fatigue [Unknown]
